FAERS Safety Report 19139129 (Version 1)
Quarter: 2021Q2

REPORT INFORMATION
  Report Type: Spontaneous
  Country: CN (occurrence: CN)
  Receive Date: 20210415
  Receipt Date: 20210415
  Transmission Date: 20210717
  Serious: Yes (Other)
  Sender: FDA-Public Use
  Company Number: NVSC2021CN076516

PATIENT
  Age: 12 Year
  Sex: Male
  Weight: 48 kg

DRUGS (2)
  1. TESTOSTERONE UNDECANOATE. [Concomitant]
     Active Substance: TESTOSTERONE UNDECANOATE
     Indication: APLASTIC ANAEMIA
     Dosage: 40 MG, QD
     Route: 048
     Dates: start: 20210207, end: 20210331
  2. SANDIMMUN NEORAL [Suspect]
     Active Substance: CYCLOSPORINE
     Indication: APLASTIC ANAEMIA
     Dosage: 250 MG, BID (250 MG/TIME TO 200 MG/TIME)
     Route: 048
     Dates: start: 20210207, end: 20210325

REACTIONS (3)
  - Hypertrichosis [Recovering/Resolving]
  - Gingival hypertrophy [Recovering/Resolving]
  - Mouth ulceration [Recovering/Resolving]

NARRATIVE: CASE EVENT DATE: 20210322
